FAERS Safety Report 25882629 (Version 1)
Quarter: 2025Q4

REPORT INFORMATION
  Report Type: Spontaneous
  Country: US (occurrence: US)
  Receive Date: 20251006
  Receipt Date: 20251006
  Transmission Date: 20260118
  Serious: No
  Sender: ROCHE
  Company Number: US-ROCHE-10000398643

PATIENT
  Age: 55 Year
  Sex: Female
  Weight: 54.43 kg

DRUGS (3)
  1. KADCYLA [Suspect]
     Active Substance: ADO-TRASTUZUMAB EMTANSINE
     Indication: Breast cancer
     Dosage: DELIVERED THROUGH PORT
     Route: 042
     Dates: start: 20250813, end: 20250924
  2. PERJETA [Suspect]
     Active Substance: PERTUZUMAB
     Indication: Breast cancer
     Dosage: DELIVERED THROUGH PORT
     Route: 042
     Dates: start: 20250228, end: 20250723
  3. HERCEPTIN [Suspect]
     Active Substance: TRASTUZUMAB
     Indication: Breast cancer
     Dosage: DELIVERED THROUGH PORT
     Route: 042
     Dates: start: 20250228, end: 20250723

REACTIONS (8)
  - Pain [Recovering/Resolving]
  - Joint stiffness [Recovering/Resolving]
  - Fatigue [Recovering/Resolving]
  - Muscle strain [Recovering/Resolving]
  - Blood alkaline phosphatase increased [Unknown]
  - Aspartate aminotransferase increased [Unknown]
  - Platelet count decreased [Unknown]
  - Myalgia [Recovering/Resolving]

NARRATIVE: CASE EVENT DATE: 20250903
